FAERS Safety Report 9848061 (Version 1)
Quarter: 2014Q1

REPORT INFORMATION
  Report Type: Spontaneous
  Country: BR (occurrence: BR)
  Receive Date: 20140128
  Receipt Date: 20140128
  Transmission Date: 20141002
  Serious: Yes (Other)
  Sender: FDA-Public Use
  Company Number: BR-VERTEX PHARMACEUTICALS INC-2014-000414

PATIENT
  Sex: Male

DRUGS (1)
  1. INCIVO [Suspect]
     Indication: CHRONIC HEPATITIS C
     Route: 065
     Dates: start: 201312, end: 201312

REACTIONS (3)
  - Drug eruption [Recovered/Resolved]
  - Rash [Recovered/Resolved]
  - Pruritus [Recovered/Resolved]
